FAERS Safety Report 7436856-8 (Version None)
Quarter: 2011Q2

REPORT INFORMATION
  Report Type: 
  Country: None (occurrence: None)
  Receive Date: 20110426
  Receipt Date: 20110421
  Transmission Date: 20111010
  Serious: No
  Sender: FDA-Public Use
  Company Number: US-PFIZER INC-2011087284

PATIENT
  Sex: Female
  Weight: 56.689 kg

DRUGS (6)
  1. ADVIL CONGESTION RELIEF [Suspect]
     Indication: HEADACHE
  2. EXCEDRIN (MIGRAINE) [Concomitant]
     Indication: HEADACHE
     Dosage: 250/150/65 MG, UNK
  3. ADVIL CONGESTION RELIEF [Suspect]
     Indication: SINUS CONGESTION
  4. ADVIL CONGESTION RELIEF [Suspect]
     Indication: SINUS HEADACHE
  5. ADVIL CONGESTION RELIEF [Suspect]
     Indication: NASAL OEDEMA
     Dosage: 200/10 MG ONCE
     Route: 048
     Dates: start: 20110420, end: 20110420
  6. EXCEDRIN (MIGRAINE) [Concomitant]
     Indication: MIGRAINE
     Dosage: 250/150/65 MG, UNK

REACTIONS (1)
  - DRUG INEFFECTIVE [None]
